FAERS Safety Report 6703841-0 (Version None)
Quarter: 2010Q2

REPORT INFORMATION
  Report Type: 
  Country: None (occurrence: None)
  Receive Date: 20100430
  Receipt Date: 20100402
  Transmission Date: 20101027
  Serious: Yes (Other)
  Sender: FDA-Public Use
  Company Number: JP-PFIZER INC-2010040204

PATIENT

DRUGS (1)
  1. SOLU-CORTEF [Suspect]

REACTIONS (1)
  - BLOOD PRESSURE DECREASED [None]
